FAERS Safety Report 24339067 (Version 1)
Quarter: 2024Q3

REPORT INFORMATION
  Report Type: Spontaneous
  Country: US (occurrence: US)
  Receive Date: 20240919
  Receipt Date: 20240919
  Transmission Date: 20241017
  Serious: No
  Sender: ANI
  Company Number: US-ANIPHARMA-2024-US-038550

PATIENT
  Age: 46 Year
  Sex: Female
  Weight: 63.5 kg

DRUGS (1)
  1. ERYTHROMYCIN ETHYLSUCCINATE [Suspect]
     Active Substance: ERYTHROMYCIN ETHYLSUCCINATE
     Indication: Small intestinal obstruction
     Dosage: 1/4 TEASPOON EVERY DAY
     Route: 048
     Dates: start: 20240711

REACTIONS (4)
  - Diarrhoea [Not Recovered/Not Resolved]
  - Product use in unapproved indication [Not Recovered/Not Resolved]
  - Drug ineffective for unapproved indication [Not Recovered/Not Resolved]
  - Expired product administered [Recovered/Resolved]

NARRATIVE: CASE EVENT DATE: 20231101
